FAERS Safety Report 9308453 (Version 2)
Quarter: 2013Q2

REPORT INFORMATION
  Report Type: Spontaneous
  Country: CN (occurrence: CN)
  Receive Date: 20130524
  Receipt Date: 20130603
  Transmission Date: 20140414
  Serious: Yes (Hospitalization)
  Sender: FDA-Public Use
  Company Number: CN-009507513-1305CHN013988

PATIENT
  Age: 68 Year
  Sex: Male
  Weight: 62.5 kg

DRUGS (1)
  1. COZAAR [Suspect]
     Indication: HYPERTENSION
     Dosage: 0.5 DF, QD
     Route: 048
     Dates: start: 20120709, end: 20120709

REACTIONS (2)
  - Asthma [Recovering/Resolving]
  - Cough [Recovering/Resolving]
